FAERS Safety Report 24614476 (Version 1)
Quarter: 2024Q4

REPORT INFORMATION
  Report Type: Spontaneous
  Country: US (occurrence: None)
  Receive Date: 20241113
  Receipt Date: 20241113
  Transmission Date: 20250115
  Serious: Yes (Other)
  Sender: Public
  Company Number: None

PATIENT
  Age: 57 Year

DRUGS (1)
  1. ATORVASTATIN [Suspect]
     Active Substance: ATORVASTATIN
     Indication: Blood cholesterol increased
     Dosage: 1 TABLET AT BEDTIME ORAL
     Route: 048
     Dates: start: 20240930, end: 20241113

REACTIONS (9)
  - Hypoaesthesia oral [None]
  - Dyspnoea [None]
  - Dizziness [None]
  - Chest discomfort [None]
  - Syncope [None]
  - Speech disorder [None]
  - Muscular weakness [None]
  - Back pain [None]
  - Impaired quality of life [None]

NARRATIVE: CASE EVENT DATE: 20241025
